FAERS Safety Report 16548819 (Version 7)
Quarter: 2022Q2

REPORT INFORMATION
  Report Type: Spontaneous
  Country: HU (occurrence: HU)
  Receive Date: 20190709
  Receipt Date: 20220505
  Transmission Date: 20220720
  Serious: Yes (Death, Hospitalization, Other)
  Sender: FDA-Public Use
  Company Number: PHHY2019HU156893

PATIENT
  Age: 12 Year
  Sex: Male

DRUGS (15)
  1. DEXAMETHASONE [Suspect]
     Active Substance: DEXAMETHASONE
     Indication: Acute lymphocytic leukaemia
     Dosage: UNK
     Route: 048
  2. DOXORUBICIN [Suspect]
     Active Substance: DOXORUBICIN
     Indication: T-cell type acute leukaemia
     Dosage: UNK
     Route: 065
  3. METHOTREXATE [Suspect]
     Active Substance: METHOTREXATE
     Indication: T-cell type acute leukaemia
     Dosage: UNK
     Route: 037
  4. CYCLOPHOSPHAMIDE [Suspect]
     Active Substance: CYCLOPHOSPHAMIDE
     Indication: T-cell type acute leukaemia
     Dosage: UNK
     Route: 042
  5. CYTARABINE [Suspect]
     Active Substance: CYTARABINE
     Indication: T-cell type acute leukaemia
     Dosage: UNK
     Route: 065
  6. ETOPOSIDE [Suspect]
     Active Substance: ETOPOSIDE
     Indication: T-cell type acute leukaemia
     Dosage: UNK
     Route: 065
  7. PREDNISOLONE [Suspect]
     Active Substance: PREDNISOLONE
     Indication: T-cell type acute leukaemia
     Dosage: UNK, BID
     Route: 037
  8. DAUNORUBICIN HYDROCHLORIDE [Suspect]
     Active Substance: DAUNORUBICIN HYDROCHLORIDE
     Indication: T-cell type acute leukaemia
     Dosage: UNK
     Route: 065
  9. VINCRISTINE [Suspect]
     Active Substance: VINCRISTINE
     Indication: T-cell type acute leukaemia
     Dosage: UNK
     Route: 042
  10. ASPARAGINASE [Suspect]
     Active Substance: ASPARAGINASE
     Indication: T-cell type acute leukaemia
     Dosage: UNK
     Route: 065
  11. IFOSFAMIDE [Suspect]
     Active Substance: IFOSFAMIDE
     Indication: T-cell type acute leukaemia
     Dosage: UNK
     Route: 065
  12. VINDESINE [Suspect]
     Active Substance: VINDESINE
     Indication: T-cell type acute leukaemia
     Dosage: UNK
     Route: 065
  13. IDARUBICIN HYDROCHLORIDE [Suspect]
     Active Substance: IDARUBICIN HYDROCHLORIDE
     Indication: T-cell type acute leukaemia
     Dosage: UNK
     Route: 042
  14. THIOGUANINE [Suspect]
     Active Substance: THIOGUANINE
     Indication: Acute lymphocytic leukaemia
     Dosage: UNK
     Route: 048
  15. PREDNISONE [Suspect]
     Active Substance: PREDNISONE
     Indication: Acute lymphocytic leukaemia
     Route: 037

REACTIONS (11)
  - Pancytopenia [Fatal]
  - Infection [Fatal]
  - Altered state of consciousness [Fatal]
  - Facial paresis [Fatal]
  - T-cell type acute leukaemia [Fatal]
  - Recurrent cancer [Fatal]
  - Condition aggravated [Fatal]
  - Retinal haemorrhage [Recovered/Resolved]
  - Papilloedema [Recovered/Resolved]
  - Visual impairment [Recovering/Resolving]
  - Visual field defect [Recovered/Resolved]
